FAERS Safety Report 23571557 (Version 1)
Quarter: 2024Q1

REPORT INFORMATION
  Report Type: Spontaneous
  Country: CN (occurrence: CN)
  Receive Date: 20240227
  Receipt Date: 20240227
  Transmission Date: 20240410
  Serious: Yes (Death, Hospitalization, Other)
  Sender: FDA-Public Use
  Company Number: CN-SANDOZ-SDZ2024CN018760

PATIENT
  Age: 53 Year
  Sex: Male

DRUGS (13)
  1. CYCLOPHOSPHAMIDE [Suspect]
     Active Substance: CYCLOPHOSPHAMIDE
     Indication: Drug reaction with eosinophilia and systemic symptoms
     Dosage: UNK
     Route: 065
  2. CASPOFUNGIN [Concomitant]
     Active Substance: CASPOFUNGIN
     Indication: Product used for unknown indication
     Dosage: 50 MG, QD
     Route: 065
  3. CLINDAMYCIN [Concomitant]
     Active Substance: CLINDAMYCIN
     Indication: Product used for unknown indication
     Dosage: 600 MG, Q8H
     Route: 065
  4. CYCLOSPORINE [Concomitant]
     Active Substance: CYCLOSPORINE
     Indication: Product used for unknown indication
     Dosage: 50 MG, BID
     Route: 065
  5. FOSFOMYCIN [Concomitant]
     Active Substance: FOSFOMYCIN
     Indication: Bacterial infection
     Dosage: 4 G, Q8H
     Route: 065
  6. HUMAN IMMUNOGLOBULIN G [Concomitant]
     Active Substance: HUMAN IMMUNOGLOBULIN G
     Indication: Rash
     Dosage: 5 G, QD
     Route: 065
  7. HUMAN IMMUNOGLOBULIN G [Concomitant]
     Active Substance: HUMAN IMMUNOGLOBULIN G
     Indication: Oedema
  8. MEROPENEM [Concomitant]
     Active Substance: MEROPENEM
     Indication: Bacterial infection
     Dosage: 1 G, BID
     Route: 065
  9. METHYLPREDNISOLONE [Concomitant]
     Active Substance: METHYLPREDNISOLONE
     Dosage: 500 MG
     Route: 065
  10. METHYLPREDNISOLONE [Concomitant]
     Active Substance: METHYLPREDNISOLONE
     Indication: Product used for unknown indication
     Dosage: 80 MG, QD
     Route: 065
  11. PRIMAQUINE [Concomitant]
     Active Substance: PRIMAQUINE
     Indication: Product used for unknown indication
     Dosage: 30 MG, QD
     Route: 065
  12. SULFAMETHOXAZOLE\TRIMETHOPRIM [Concomitant]
     Active Substance: SULFAMETHOXAZOLE\TRIMETHOPRIM
     Indication: Product used for unknown indication
     Dosage: 8 DF, Q8H
     Route: 065
  13. VORICONAZOLE [Concomitant]
     Active Substance: VORICONAZOLE
     Indication: Product used for unknown indication
     Dosage: 200 MG
     Route: 065

REACTIONS (1)
  - Pneumocystis jirovecii pneumonia [Fatal]
